FAERS Safety Report 9820399 (Version 1)
Quarter: 2014Q1

REPORT INFORMATION
  Report Type: Spontaneous
  Country: US (occurrence: None)
  Receive Date: 20140114
  Receipt Date: 20140114
  Transmission Date: 20141002
  Serious: Yes (Life-Threatening, Hospitalization)
  Sender: FDA-Public Use
  Company Number: None

PATIENT
  Age: 75 None
  Sex: Female
  Weight: 72.58 kg

DRUGS (3)
  1. LISINOPRIL-HCTZ [Suspect]
     Indication: HYPERTENSION
     Route: 048
     Dates: end: 20131220
  2. ASPIRIN [Concomitant]
  3. VITAMIN D3 [Concomitant]

REACTIONS (3)
  - Swollen tongue [None]
  - Pharyngeal oedema [None]
  - Local swelling [None]
